FAERS Safety Report 5179462-0 (Version None)
Quarter: 2006Q4

REPORT INFORMATION
  Report Type: 
  Country: None (occurrence: None)
  Receive Date: 20061219
  Receipt Date: 20060411
  Transmission Date: 20070319
  Serious: Yes (Hospitalization)
  Sender: FDA-Public Use
  Company Number: US-BRISTOL-MYERS SQUIBB COMPANY-13344130

PATIENT
  Age: 69 Year
  Sex: Male

DRUGS (11)
  1. CISPLATIN [Suspect]
     Indication: LUNG NEOPLASM MALIGNANT
     Route: 041
     Dates: start: 20060321, end: 20060321
  2. TS-1 [Suspect]
     Indication: LUNG NEOPLASM MALIGNANT
     Route: 048
     Dates: start: 20060321
  3. PERCOCET [Concomitant]
     Indication: PAIN
     Route: 048
     Dates: start: 20060201
  4. DILTIAZEM HCL [Concomitant]
  5. MS CONTIN [Concomitant]
     Indication: PAIN
     Route: 048
     Dates: start: 20060201
  6. COMBIVENT [Concomitant]
     Indication: CHRONIC OBSTRUCTIVE PULMONARY DISEASE
     Route: 055
     Dates: start: 20060201
  7. ADVAIR DISKUS 100/50 [Concomitant]
     Indication: CHRONIC OBSTRUCTIVE PULMONARY DISEASE
     Route: 055
     Dates: start: 20060201
  8. CIPROFLOXACIN [Concomitant]
  9. FLAGYL [Concomitant]
  10. VANCOMYCIN [Concomitant]
  11. NEUPOGEN [Concomitant]
     Dates: end: 20060408

REACTIONS (3)
  - HYPONATRAEMIA [None]
  - ORAL INTAKE REDUCED [None]
  - PULMONARY EMBOLISM [None]
